FAERS Safety Report 4648794-4 (Version None)
Quarter: 2005Q2

REPORT INFORMATION
  Report Type: 
  Country: None (occurrence: None)
  Receive Date: 20050429
  Receipt Date: 20050421
  Transmission Date: 20051028
  Serious: Yes (Other)
  Sender: FDA-Public Use
  Company Number: US-JNJFOC-20050405367

PATIENT
  Age: 59 Year
  Sex: Male

DRUGS (2)
  1. LEVAQUIN [Suspect]
     Route: 049
  2. LEVAQUIN [Suspect]
     Indication: PHARYNGITIS
     Route: 049

REACTIONS (1)
  - COLITIS ISCHAEMIC [None]
